FAERS Safety Report 4515255-2 (Version None)
Quarter: 2004Q4

REPORT INFORMATION
  Report Type: 
  Country: None (occurrence: None)
  Receive Date: 20041130
  Receipt Date: 20041130
  Transmission Date: 20050328
  Serious: Yes (Life-Threatening)
  Sender: FDA-Public Use
  Company Number: None

PATIENT
  Age: 10 Year
  Sex: Male

DRUGS (5)
  1. DIVALPROEX SODIUM [Suspect]
     Indication: BIPOLAR I DISORDER
     Dosage: 750 MG HS PO
     Route: 048
     Dates: start: 20041029, end: 20041109
  2. AZITHROMYCIN [Suspect]
     Indication: EAR DISORDER
     Dosage: 250 TID PO
     Route: 048
     Dates: start: 20041105, end: 20041109
  3. QUETIAPINE [Concomitant]
  4. ATOMOXETINE [Concomitant]
  5. AZITHROMYCIN [Concomitant]

REACTIONS (1)
  - NEUTROPENIA [None]
